FAERS Safety Report 16222060 (Version 1)
Quarter: 2019Q2

REPORT INFORMATION
  Report Type: Spontaneous
  Country: CN (occurrence: CN)
  Receive Date: 20190422
  Receipt Date: 20190422
  Transmission Date: 20190711
  Serious: Yes (Hospitalization)
  Sender: FDA-Public Use
  Company Number: CN-SA-2019SA108202

PATIENT
  Age: 85 Year
  Sex: Male
  Weight: 50 kg

DRUGS (26)
  1. ACETYLSALICYLIC ACID [Suspect]
     Active Substance: ASPIRIN
     Indication: CEREBRAL INFARCTION
     Dosage: 100 MG, QD
     Route: 048
     Dates: start: 20190326, end: 20190401
  2. POTASSIUM CHLORIDE. [Suspect]
     Active Substance: POTASSIUM CHLORIDE
     Indication: HYPERTENSION
  3. POTASSIUM CHLORIDE. [Suspect]
     Active Substance: POTASSIUM CHLORIDE
     Indication: BENIGN PROSTATIC HYPERPLASIA
  4. ACETYLSALICYLIC ACID [Suspect]
     Active Substance: ASPIRIN
     Indication: TYPE 2 DIABETES MELLITUS
  5. ATORVASTATIN [Suspect]
     Active Substance: ATORVASTATIN
     Indication: PNEUMONIA
  6. HARNAL [Suspect]
     Active Substance: TAMSULOSIN HYDROCHLORIDE
     Indication: BENIGN PROSTATIC HYPERPLASIA
     Dosage: 0.2 MG, QD
     Route: 048
     Dates: start: 20190328, end: 20190401
  7. HARNAL [Suspect]
     Active Substance: TAMSULOSIN HYDROCHLORIDE
     Indication: CEREBRAL INFARCTION
  8. HARNAL [Suspect]
     Active Substance: TAMSULOSIN HYDROCHLORIDE
     Indication: PNEUMONIA
  9. POTASSIUM CHLORIDE. [Suspect]
     Active Substance: POTASSIUM CHLORIDE
     Indication: CEREBRAL INFARCTION
     Dosage: 1 G, TID
     Route: 048
     Dates: start: 20190328, end: 20190403
  10. POTASSIUM CHLORIDE. [Suspect]
     Active Substance: POTASSIUM CHLORIDE
     Indication: PNEUMONIA
  11. REPAGLINIDE. [Suspect]
     Active Substance: REPAGLINIDE
     Indication: HYPERTENSION
  12. REPAGLINIDE. [Suspect]
     Active Substance: REPAGLINIDE
     Indication: TYPE 2 DIABETES MELLITUS
  13. ATORVASTATIN [Suspect]
     Active Substance: ATORVASTATIN
     Indication: TYPE 2 DIABETES MELLITUS
  14. REPAGLINIDE. [Suspect]
     Active Substance: REPAGLINIDE
     Indication: PNEUMONIA
  15. ATORVASTATIN [Suspect]
     Active Substance: ATORVASTATIN
     Indication: HYPERTENSION
  16. HARNAL [Suspect]
     Active Substance: TAMSULOSIN HYDROCHLORIDE
     Indication: TYPE 2 DIABETES MELLITUS
  17. ACETYLSALICYLIC ACID [Suspect]
     Active Substance: ASPIRIN
     Indication: HYPERTENSION
  18. ATORVASTATIN [Suspect]
     Active Substance: ATORVASTATIN
     Indication: CEREBRAL INFARCTION
     Dosage: 20 MG, QD
     Route: 048
     Dates: start: 20190326, end: 20190330
  19. ACETYLSALICYLIC ACID [Suspect]
     Active Substance: ASPIRIN
     Indication: BENIGN PROSTATIC HYPERPLASIA
  20. REPAGLINIDE. [Suspect]
     Active Substance: REPAGLINIDE
     Indication: CEREBRAL INFARCTION
     Dosage: 0.5 MG, BID
     Route: 048
     Dates: start: 20190329, end: 20190401
  21. ACETYLSALICYLIC ACID [Suspect]
     Active Substance: ASPIRIN
     Indication: PNEUMONIA
  22. HARNAL [Suspect]
     Active Substance: TAMSULOSIN HYDROCHLORIDE
     Indication: HYPERTENSION
  23. POTASSIUM CHLORIDE. [Suspect]
     Active Substance: POTASSIUM CHLORIDE
     Indication: TYPE 2 DIABETES MELLITUS
  24. REPAGLINIDE. [Suspect]
     Active Substance: REPAGLINIDE
     Indication: BENIGN PROSTATIC HYPERPLASIA
  25. ATORVASTATIN [Suspect]
     Active Substance: ATORVASTATIN
     Indication: BENIGN PROSTATIC HYPERPLASIA
  26. DIAMICRON [Concomitant]
     Active Substance: GLICLAZIDE
     Dosage: UNK
     Dates: start: 20190328, end: 20190329

REACTIONS (1)
  - Transaminases increased [Unknown]

NARRATIVE: CASE EVENT DATE: 20190331
